FAERS Safety Report 18598240 (Version 1)
Quarter: 2020Q4

REPORT INFORMATION
  Report Type: Spontaneous
  Country: US (occurrence: US)
  Receive Date: 20201210
  Receipt Date: 20201210
  Transmission Date: 20210114
  Serious: Yes (Hospitalization, Other)
  Sender: FDA-Public Use
  Company Number: US-LUPIN PHARMACEUTICALS INC.-2020-10073

PATIENT
  Age: 31 Year
  Sex: Female
  Weight: 58.05 kg

DRUGS (23)
  1. VENLAFAXINE [Suspect]
     Active Substance: VENLAFAXINE HYDROCHLORIDE
     Indication: PRODUCT USED FOR UNKNOWN INDICATION
     Dosage: UNK
     Route: 065
  2. GANIRELIX [Suspect]
     Active Substance: GANIRELIX
     Indication: INFERTILITY
     Dosage: UNK
     Route: 065
     Dates: start: 201809
  3. PROGESTERONE. [Suspect]
     Active Substance: PROGESTERONE
     Indication: INFERTILITY
     Dosage: UNK
     Route: 065
     Dates: start: 20181118
  4. CITALOPRAM [Suspect]
     Active Substance: CITALOPRAM HYDROBROMIDE
     Indication: PRODUCT USED FOR UNKNOWN INDICATION
     Dosage: UNK
     Route: 065
  5. MAGNESIUM [Suspect]
     Active Substance: MAGNESIUM
     Indication: PRODUCT USED FOR UNKNOWN INDICATION
     Dosage: UNK
     Route: 065
  6. IRON [Suspect]
     Active Substance: IRON
     Indication: DRUG THERAPY
     Dosage: UNK
     Route: 042
  7. FSH [Suspect]
     Active Substance: FOLLITROPIN
     Indication: INFERTILITY
     Dosage: UNK
     Route: 065
     Dates: start: 201809
  8. METHADONE [Suspect]
     Active Substance: METHADONE HYDROCHLORIDE
     Indication: BREAST PAIN
     Dosage: UNK
     Route: 065
  9. TYLENOL [Suspect]
     Active Substance: ACETAMINOPHEN
     Indication: BREAST PAIN
     Dosage: UNK
     Route: 065
  10. ENOXAPARIN [Suspect]
     Active Substance: ENOXAPARIN
     Indication: THROMBOSIS PROPHYLAXIS
     Dosage: UNK
     Route: 065
  11. BROMOCRIPTINE [Suspect]
     Active Substance: BROMOCRIPTINE
     Dosage: 5 MILLIGRAM
     Route: 065
  12. METHADONE [Suspect]
     Active Substance: METHADONE HYDROCHLORIDE
     Dosage: 30 MILLIGRAM, BID
     Route: 065
  13. BROMOCRIPTINE [Suspect]
     Active Substance: BROMOCRIPTINE
     Dosage: 10 MILLIGRAM
     Route: 065
  14. LETROZOLE. [Concomitant]
     Active Substance: LETROZOLE
     Indication: DRUG THERAPY
     Dosage: 2.5 MILLIGRAM
     Route: 065
     Dates: start: 20180322
  15. BROMOCRIPTINE [Suspect]
     Active Substance: BROMOCRIPTINE
     Indication: BREAST ENLARGEMENT
     Dosage: 2.5 MILLIGRAM, BID
     Route: 065
  16. MENOPUR [Suspect]
     Active Substance: FOLLITROPIN\LUTEINIZING HORMONE
     Indication: INFERTILITY
     Dosage: UNK
     Route: 065
     Dates: start: 201809
  17. HYDROMORPHONE [Suspect]
     Active Substance: HYDROMORPHONE
     Indication: BREAST PAIN
     Dosage: UNK
     Route: 065
  18. ESTRADIOL. [Suspect]
     Active Substance: ESTRADIOL
     Indication: INFERTILITY
     Dosage: UNK
     Route: 065
     Dates: start: 201810
  19. OXYCODONE HYDROCHLORIDE. [Suspect]
     Active Substance: OXYCODONE HYDROCHLORIDE
     Indication: BREAST PAIN
     Dosage: UNK
     Route: 065
  20. BETAMETHASONE. [Suspect]
     Active Substance: BETAMETHASONE
     Indication: MATERNAL THERAPY TO ENHANCE FOETAL LUNG MATURITY
     Dosage: UNK
     Route: 065
  21. PROGESTERONE. [Suspect]
     Active Substance: PROGESTERONE
     Dosage: UNK
     Route: 067
  22. FOLLISTIM [Suspect]
     Active Substance: FOLLITROPIN
     Indication: INFERTILITY
     Dosage: UNK
     Route: 065
     Dates: start: 201809
  23. CABERGOLINE. [Suspect]
     Active Substance: CABERGOLINE
     Indication: BREAST ENLARGEMENT
     Dosage: 0.5 MILLIGRAM
     Route: 065

REACTIONS (11)
  - Breast enlargement [Recovered/Resolved]
  - Panic disorder [Unknown]
  - Anxiety [Unknown]
  - Hallucination, visual [Unknown]
  - Premature delivery [Unknown]
  - Delirium [Unknown]
  - Fatigue [Unknown]
  - Breast injury [Recovered/Resolved]
  - Haemorrhage [Recovered/Resolved]
  - Ulcer [Recovered/Resolved]
  - Exposure during pregnancy [Unknown]
